FAERS Safety Report 4287522-1 (Version None)
Quarter: 2004Q1

REPORT INFORMATION
  Report Type: 
  Country: None (occurrence: None)
  Receive Date: 20040205
  Receipt Date: 20040107
  Transmission Date: 20041129
  Serious: Yes (Hospitalization)
  Sender: FDA-Public Use
  Company Number: A02200400093

PATIENT
  Age: 60 Year
  Sex: Male

DRUGS (4)
  1. XATRAL - (ALFUZOSIN) - TABLET - 2.5 MG [Suspect]
     Dosage: ORAL A FEW YEARS
     Route: 048
     Dates: end: 20031205
  2. CIALIS [Suspect]
     Dosage: 10 MG OD; ORAL
     Route: 048
     Dates: start: 20031201, end: 20031201
  3. THAOR (ATORVASTATIN CALCIUM) [Concomitant]
  4. OGAST (LANSOPRAZOLE) [Concomitant]

REACTIONS (3)
  - INTERVERTEBRAL DISC PROTRUSION [None]
  - NUCLEAR MAGNETIC RESONANCE IMAGING ABNORMAL [None]
  - PRIAPISM [None]
